FAERS Safety Report 7639083-4 (Version None)
Quarter: 2011Q3

REPORT INFORMATION
  Report Type: 
  Country: None (occurrence: None)
  Receive Date: 20110727
  Receipt Date: 20110715
  Transmission Date: 20111222
  Serious: Yes (Other)
  Sender: FDA-Public Use
  Company Number: PHHY2011AU57175

PATIENT
  Sex: Female

DRUGS (2)
  1. HORMONES [Concomitant]
  2. FEMARA [Suspect]
     Indication: BREAST CANCER
     Dosage: 2.5 MG
     Route: 048
     Dates: start: 20110501, end: 20110713

REACTIONS (6)
  - ANORECTAL DISCOMFORT [None]
  - DYSURIA [None]
  - ATROPHIC VULVOVAGINITIS [None]
  - VULVOVAGINAL BURNING SENSATION [None]
  - URINARY TRACT INFECTION [None]
  - DYSPAREUNIA [None]
